FAERS Safety Report 17298521 (Version 1)
Quarter: 2020Q3

REPORT INFORMATION
  Report Type: Spontaneous
  Country: FR (occurrence: FR)
  Receive Date: 20200121
  Receipt Date: 20200121
  Transmission Date: 20201105
  Serious: Yes (Other)
  Sender: FDA-Public Use
  Company Number: FR-JNJFOC-20200127853

PATIENT
  Age: 60 Year
  Sex: Female
  Weight: 72 kg

DRUGS (13)
  1. EPHEDRINE. [Suspect]
     Active Substance: EPHEDRINE
     Indication: HYPOTENSION
     Route: 041
     Dates: start: 20191211, end: 20191211
  2. REMIFENTANIL MYLAN [Suspect]
     Active Substance: REMIFENTANIL
     Indication: INDUCTION OF ANAESTHESIA
     Dosage: 50 MG, ONCE
     Route: 041
     Dates: start: 20191211, end: 20191211
  3. VOLUVEN [Suspect]
     Active Substance: HYDROXYETHYL STARCH 130/0.4
     Indication: HYPOTENSION
     Route: 041
     Dates: start: 20191211, end: 20191211
  4. XYLOCARD [Suspect]
     Active Substance: LIDOCAINE HYDROCHLORIDE
     Indication: PRODUCT USED FOR UNKNOWN INDICATION
     Dosage: 720.74 MG, 1/DAY
     Route: 041
     Dates: start: 20191211, end: 20191211
  5. DEXAMETHASONE. [Suspect]
     Active Substance: DEXAMETHASONE
     Indication: ANAESTHESIA
     Dosage: 1 DF, ONCE
     Route: 041
     Dates: start: 20191211, end: 20191211
  6. CEFAZOLINE MYLAN [Suspect]
     Active Substance: CEFAZOLIN SODIUM
     Indication: ANTIBIOTIC PROPHYLAXIS
     Dosage: 1 DF, 1/DAY
     Route: 041
     Dates: start: 20191211, end: 20191211
  7. ROCURONIUM [Suspect]
     Active Substance: ROCURONIUM BROMIDE
     Indication: INDUCTION OF ANAESTHESIA
     Route: 041
     Dates: start: 20191211, end: 20191211
  8. OXYNORM [Suspect]
     Active Substance: OXYCODONE HYDROCHLORIDE
     Indication: PAIN
     Dosage: 7 MG, 1/DAY
     Route: 041
     Dates: start: 20191211, end: 20191211
  9. NORADRENALINE                      /00127501/ [Suspect]
     Active Substance: NOREPINEPHRINE
     Indication: HYPOTENSION
     Dosage: 0.8 MG, ONCE
     Route: 041
     Dates: start: 20191211, end: 20191211
  10. KETAMINE RENAUDIN [Suspect]
     Active Substance: KETAMINE
     Indication: ANAESTHESIA
     Route: 041
     Dates: start: 20191211, end: 20191211
  11. PARACETAMOL B. BRAUN [Suspect]
     Active Substance: ACETAMINOPHEN
     Indication: PAIN
     Dosage: 1 G, ONCE
     Route: 041
     Dates: start: 20191211, end: 20191211
  12. TRAMADOL HYDROCHLORIDE. [Suspect]
     Active Substance: TRAMADOL HYDROCHLORIDE
     Indication: PAIN
     Dosage: IN TOTAL
     Route: 041
     Dates: start: 20191211, end: 20191211
  13. PROPOFOL. [Suspect]
     Active Substance: PROPOFOL
     Indication: INDUCTION OF ANAESTHESIA
     Route: 041
     Dates: start: 20191211, end: 20191211

REACTIONS (1)
  - Chorea [Recovered/Resolved]

NARRATIVE: CASE EVENT DATE: 20191211
